FAERS Safety Report 26173344 (Version 1)
Quarter: 2025Q4

REPORT INFORMATION
  Report Type: Spontaneous
  Country: EU (occurrence: EU)
  Receive Date: 20251218
  Receipt Date: 20251218
  Transmission Date: 20260117
  Serious: Yes (Death, Hospitalization, Other)
  Sender: CELLTRION
  Company Number: EU-SA-2025SA364743

PATIENT

DRUGS (2)
  1. RITUXIMAB [Suspect]
     Active Substance: RITUXIMAB
     Indication: Diffuse large B-cell lymphoma
     Dosage: UNK
  2. ALEMTUZUMAB [Suspect]
     Active Substance: ALEMTUZUMAB
     Indication: T-cell prolymphocytic leukaemia
     Dosage: UNK

REACTIONS (5)
  - Lung opacity [Fatal]
  - Respiratory failure [Fatal]
  - Respiratory moniliasis [Fatal]
  - Cytomegalovirus infection reactivation [Unknown]
  - Epstein-Barr viraemia [Unknown]
